FAERS Safety Report 9531264 (Version 1)
Quarter: 2013Q3

REPORT INFORMATION
  Report Type: Spontaneous
  Country: US (occurrence: None)
  Receive Date: 20130916
  Receipt Date: 20130916
  Transmission Date: 20140515
  Serious: Yes (Life-Threatening, Hospitalization)
  Sender: FDA-Public Use
  Company Number: None

PATIENT
  Age: 50 Year
  Sex: Male
  Weight: 111.13 kg

DRUGS (1)
  1. CIPROFLOXACIN [Suspect]
     Indication: KIDNEY INFECTION
     Route: 048
     Dates: start: 20130911, end: 20130911

REACTIONS (4)
  - Sneezing [None]
  - Pharyngeal inflammation [None]
  - Rash [None]
  - Aphonia [None]
